FAERS Safety Report 6183166-5 (Version None)
Quarter: 2009Q2

REPORT INFORMATION
  Report Type: 
  Country: None (occurrence: None)
  Receive Date: 20090507
  Receipt Date: 20090428
  Transmission Date: 20091009
  Serious: Yes (Other)
  Sender: FDA-Public Use
  Company Number: NL-JNJFOC-20090406975

PATIENT
  Sex: Male

DRUGS (4)
  1. RISPERDAL [Suspect]
     Indication: DRUG USE FOR UNKNOWN INDICATION
     Route: 065
  2. OXAZEPAM [Concomitant]
     Dosage: HALF A DAY
     Route: 065
  3. OXAZEPAM [Concomitant]
     Route: 065
  4. LEXAPRO [Concomitant]
     Route: 065

REACTIONS (1)
  - WATER INTOXICATION [None]
